FAERS Safety Report 10176262 (Version 2)
Quarter: 2014Q2

REPORT INFORMATION
  Report Type: Spontaneous
  Country: US (occurrence: US)
  Receive Date: 20140516
  Receipt Date: 20140626
  Transmission Date: 20141212
  Serious: No
  Sender: FDA-Public Use
  Company Number: US-PFIZER INC-2014133726

PATIENT
  Age: 65 Year
  Sex: 0

DRUGS (9)
  1. CELEBREX [Suspect]
     Dosage: UNK
  2. CALCIUM CARBONATE [Suspect]
     Dosage: UNK
  3. MEDROL [Suspect]
     Dosage: UNK
  4. DARVON [Suspect]
     Dosage: UNK
  5. LOTENSIN [Suspect]
     Dosage: UNK
  6. LOTREL [Suspect]
     Dosage: UNK
  7. TALWIN [Suspect]
     Dosage: UNK
  8. FLEXERIL [Suspect]
     Dosage: UNK
  9. TYLENOL [Suspect]
     Dosage: UNK

REACTIONS (1)
  - Drug hypersensitivity [Unknown]
